FAERS Safety Report 18534423 (Version 1)
Quarter: 2020Q4

REPORT INFORMATION
  Report Type: Spontaneous
  Country: US (occurrence: US)
  Receive Date: 20201123
  Receipt Date: 20201123
  Transmission Date: 20210114
  Serious: No
  Sender: FDA-Public Use
  Company Number: US-BRACCO-2020US03788

PATIENT

DRUGS (3)
  1. LUMASON [Suspect]
     Active Substance: SULFUR HEXAFLUORIDE
     Indication: DIAGNOSTIC PROCEDURE
     Dosage: UNK, SINGLE
  2. LUMASON [Suspect]
     Active Substance: SULFUR HEXAFLUORIDE
     Indication: DIAGNOSTIC PROCEDURE
     Dosage: UNK, SINGLE
  3. LUMASON [Suspect]
     Active Substance: SULFUR HEXAFLUORIDE
     Indication: DIAGNOSTIC PROCEDURE
     Dosage: UNK, SINGLE

REACTIONS (3)
  - Product physical consistency issue [Unknown]
  - No adverse event [Unknown]
  - Therapeutic product effect decreased [Unknown]
